FAERS Safety Report 7391206-0 (Version None)
Quarter: 2011Q2

REPORT INFORMATION
  Report Type: 
  Country: None (occurrence: None)
  Receive Date: 20110404
  Receipt Date: 20100622
  Transmission Date: 20111010
  Serious: Yes (Other)
  Sender: FDA-Public Use
  Company Number: US-PFIZER INC-2010078399

PATIENT
  Sex: Female
  Weight: 47.17 kg

DRUGS (3)
  1. SERTRALINE HYDROCHLORIDE [Suspect]
     Dosage: 50 MG, 1X/DAY
     Dates: start: 20100601, end: 20100601
  2. ATIVAN [Suspect]
     Indication: ANXIETY
     Dosage: 0.5 MG, AS NEEDED
  3. SERTRALINE HYDROCHLORIDE [Suspect]
     Indication: DEPRESSION
     Dosage: HALF OF A 50MG, 1X/DAY
     Dates: start: 20100601, end: 20100601

REACTIONS (1)
  - DEPRESSION [None]
